FAERS Safety Report 24580610 (Version 1)
Quarter: 2024Q4

REPORT INFORMATION
  Report Type: Report from Study
  Country: FR (occurrence: FR)
  Receive Date: 20241105
  Receipt Date: 20241105
  Transmission Date: 20250115
  Serious: Yes (Other)
  Sender: JOHNSON AND JOHNSON
  Company Number: FR-JNJFOC-20241085988

PATIENT

DRUGS (2)
  1. REMICADE [Suspect]
     Active Substance: INFLIXIMAB
     Indication: Colitis ulcerative
     Route: 041
  2. REMICADE [Suspect]
     Active Substance: INFLIXIMAB
     Indication: Crohn^s disease

REACTIONS (10)
  - Tuberculosis [Unknown]
  - Opportunistic infection [Unknown]
  - Hepatitis B [Unknown]
  - Infection [Unknown]
  - Hypersensitivity [Unknown]
  - Type IV hypersensitivity reaction [Unknown]
  - Drug specific antibody present [Unknown]
  - Neutralising antibodies [Unknown]
  - Treatment failure [Unknown]
  - Drug intolerance [Unknown]
